FAERS Safety Report 16431686 (Version 2)
Quarter: 2019Q2

REPORT INFORMATION
  Report Type: Spontaneous
  Country: US (occurrence: US)
  Receive Date: 20190614
  Receipt Date: 20190626
  Transmission Date: 20190711
  Serious: No
  Sender: FDA-Public Use
  Company Number: US-KRAMERLABS-2019-US-005706

PATIENT
  Age: 89 Year
  Sex: Female
  Weight: 52.16 kg

DRUGS (1)
  1. NIZORAL A-D [Suspect]
     Active Substance: KETOCONAZOLE
     Indication: PRURITUS
     Dosage: TWICE WEEKLY FOR A TOTAL OF 3 SHAMPOOS.
     Route: 061
     Dates: start: 201903, end: 201903

REACTIONS (2)
  - Hair colour changes [Unknown]
  - Application site rash [Recovering/Resolving]

NARRATIVE: CASE EVENT DATE: 20190320
